FAERS Safety Report 16233828 (Version 1)
Quarter: 2019Q2

REPORT INFORMATION
  Report Type: Spontaneous
  Country: US (occurrence: US)
  Receive Date: 20190423
  Receipt Date: 20190423
  Transmission Date: 20190711
  Serious: Yes (Other)
  Sender: FDA-Public Use
  Company Number: None

PATIENT
  Age: 52 Year
  Sex: Female
  Weight: 61.2 kg

DRUGS (1)
  1. FLUCONAZOLE. [Suspect]
     Active Substance: FLUCONAZOLE
     Indication: FUNGAL CYSTITIS
     Dosage: ?          QUANTITY:14 TABLET(S);?
     Route: 048
     Dates: start: 20190410, end: 20190413

REACTIONS (7)
  - Nausea [None]
  - Rectal haemorrhage [None]
  - Vomiting [None]
  - Gastrointestinal inflammation [None]
  - Constipation [None]
  - Anorectal discomfort [None]
  - Gastrointestinal disorder [None]

NARRATIVE: CASE EVENT DATE: 20190415
